FAERS Safety Report 6842372-4 (Version None)
Quarter: 2010Q3

REPORT INFORMATION
  Report Type: 
  Country: None (occurrence: None)
  Receive Date: 20100714
  Receipt Date: 20070802
  Transmission Date: 20110219
  Serious: Yes (Other)
  Sender: FDA-Public Use
  Company Number: US-PFIZER INC-2007062695

PATIENT
  Sex: Female
  Weight: 43.181 kg

DRUGS (6)
  1. CHANTIX [Suspect]
     Indication: SMOKING CESSATION THERAPY
     Dates: start: 20070722
  2. XANAX [Concomitant]
  3. CYMBALTA [Concomitant]
  4. EFFEXOR [Concomitant]
  5. VITAMINS [Concomitant]
  6. HERBAL PREPARATION [Concomitant]

REACTIONS (3)
  - HYPOGLYCAEMIA [None]
  - NAUSEA [None]
  - VOMITING [None]
